FAERS Safety Report 23015672 (Version 2)
Quarter: 2023Q4

REPORT INFORMATION
  Report Type: Spontaneous
  Country: EG (occurrence: EG)
  Receive Date: 20231002
  Receipt Date: 20231009
  Transmission Date: 20240110
  Serious: Yes (Life-Threatening, Other)
  Sender: FDA-Public Use
  Company Number: EG-MYLANLABS-2023M1103282

PATIENT
  Age: 57 Year
  Sex: Female

DRUGS (1)
  1. CARBOPLATIN [Suspect]
     Active Substance: CARBOPLATIN
     Indication: Ovarian cancer
     Dosage: 212 MILLIGRAM, QD (ONCE, CYCLICALLY)
     Route: 042
     Dates: start: 20220808, end: 20220808

REACTIONS (2)
  - Flushing [Recovered/Resolved]
  - Dyspnoea [Recovered/Resolved]

NARRATIVE: CASE EVENT DATE: 20220808
